FAERS Safety Report 9230740 (Version 1)
Quarter: 2013Q2

REPORT INFORMATION
  Report Type: Spontaneous
  Country: IT (occurrence: None)
  Receive Date: 20130411
  Receipt Date: 20130411
  Transmission Date: 20140414
  Serious: Yes (Hospitalization)
  Sender: FDA-Public Use
  Company Number: FK201301110

PATIENT
  Age: 60 Year
  Sex: Female
  Weight: 62 kg

DRUGS (3)
  1. OXALIPLATIN [Suspect]
     Indication: PLEURAL MESOTHELIOMA MALIGNANT
     Dosage: 100 MG/MQ BODY SURFACE
     Dates: start: 20130315, end: 20130315
  2. EXAMETHASONE PHOSPHATE (DEXAMETHASONE PHOSPHATE) [Concomitant]
  3. ONDANSETRON (ONDANSETRON) [Concomitant]

REACTIONS (2)
  - Dyspnoea [None]
  - Laryngospasm [None]
